FAERS Safety Report 26189064 (Version 1)
Quarter: 2025Q4

REPORT INFORMATION
  Report Type: Spontaneous
  Country: US (occurrence: US)
  Receive Date: 20251223
  Receipt Date: 20251223
  Transmission Date: 20260118
  Serious: Yes (Death, Hospitalization, Other)
  Sender: TWI PHARMACEUTICALS
  Company Number: US-TWI PHARMACEUTICAL, INC-20251201590

PATIENT
  Age: 57 Year
  Sex: Female

DRUGS (1)
  1. BUPROPION HYDROCHLORIDE XL [Suspect]
     Active Substance: BUPROPION HYDROCHLORIDE
     Indication: Product used for unknown indication
     Dosage: INTENTIONALLY INGESTING APPROXIMATELY 12G
     Route: 065

REACTIONS (6)
  - Cardiogenic shock [Fatal]
  - Toxicity to various agents [Fatal]
  - Intentional overdose [None]
  - Toxic cardiomyopathy [Unknown]
  - Respiratory failure [None]
  - Seizure [Unknown]
